FAERS Safety Report 5048476-3 (Version None)
Quarter: 2006Q3

REPORT INFORMATION
  Report Type: 
  Country: None (occurrence: None)
  Receive Date: 20060705
  Receipt Date: 20060627
  Transmission Date: 20061208
  Serious: Yes (Hospitalization)
  Sender: FDA-Public Use
  Company Number: B0428643A

PATIENT
  Age: 32 Year
  Sex: Male

DRUGS (2)
  1. AMOXIL [Suspect]
     Indication: RESPIRATORY TRACT INFECTION
     Dosage: SINGLE DOSE / ORAL
     Route: 048
  2. DIPYRONE INJ [Concomitant]

REACTIONS (9)
  - BIOPSY SKIN ABNORMAL [None]
  - BLISTER [None]
  - BLOOD LACTATE DEHYDROGENASE INCREASED [None]
  - DRUG ERUPTION [None]
  - EPSTEIN-BARR VIRUS ANTIBODY POSITIVE [None]
  - ERYTHEMA [None]
  - PETECHIAE [None]
  - SKIN BURNING SENSATION [None]
  - SKIN TEST POSITIVE [None]
